FAERS Safety Report 6891526-X (Version None)
Quarter: 2010Q3

REPORT INFORMATION
  Report Type: 
  Country: None (occurrence: None)
  Receive Date: 20100731
  Receipt Date: 20070822
  Transmission Date: 20110219
  Serious: Yes (Other)
  Sender: FDA-Public Use
  Company Number: US-PFIZER INC-2007054960

PATIENT
  Sex: Female
  Weight: 117.72 kg

DRUGS (9)
  1. NEURONTIN [Suspect]
     Indication: DIABETIC NEUROPATHY
     Dates: start: 20030101
  2. LYRICA [Suspect]
     Indication: DIABETIC NEUROPATHY
     Dates: start: 20070626
  3. LYRICA [Suspect]
     Indication: FIBROMYALGIA
  4. TENORMIN [Concomitant]
  5. VALSARTAN [Concomitant]
  6. ALPRAZOLAM [Concomitant]
  7. INSULIN [Concomitant]
  8. LASIX [Concomitant]
  9. POTASSIUM [Concomitant]

REACTIONS (6)
  - BALANCE DISORDER [None]
  - DIPLOPIA [None]
  - DISTURBANCE IN ATTENTION [None]
  - DIZZINESS [None]
  - FIBROMYALGIA [None]
  - VISION BLURRED [None]
